FAERS Safety Report 11054587 (Version 3)
Quarter: 2015Q2

REPORT INFORMATION
  Report Type: Report from Study
  Country: US (occurrence: US)
  Receive Date: 20150422
  Receipt Date: 20150514
  Transmission Date: 20150821
  Serious: Yes (Other)
  Sender: FDA-Public Use
  Company Number: US-AMGEN-USASL2015037218

PATIENT
  Age: 58 Year
  Sex: Male
  Weight: 112.8 kg

DRUGS (14)
  1. HYDROCHLOROTHIAZIDE. [Concomitant]
     Active Substance: HYDROCHLOROTHIAZIDE
     Dosage: 25 MG, QD
     Route: 048
  2. ENBREL [Suspect]
     Active Substance: ETANERCEPT
     Indication: RHEUMATOID ARTHRITIS
     Dosage: 50 MG, QWK
     Route: 058
     Dates: start: 20150406
  3. ACIPHEX [Concomitant]
     Active Substance: RABEPRAZOLE SODIUM
     Dosage: 20 MG, QD
     Route: 048
  4. LIDEX-E [Concomitant]
     Active Substance: FLUOCINONIDE
     Dosage: 0.05% TOPICAL CREAM, 1 APPLY, 3 TIMES A DAY
     Route: 061
  5. VITAMIN D                          /00107901/ [Concomitant]
     Active Substance: ERGOCALCIFEROL
     Dosage: 2000 IU, QD
  6. ASPIRIN                            /00002701/ [Concomitant]
     Active Substance: ASPIRIN
     Dosage: 81 MG, QD
  7. SULFASALAZINE. [Concomitant]
     Active Substance: SULFASALAZINE
     Dosage: 1000 MG, 2 TIMES/WK
     Route: 048
  8. ZOLOFT [Concomitant]
     Active Substance: SERTRALINE HYDROCHLORIDE
     Dosage: 50 MG, QD
     Route: 048
  9. NORCO [Concomitant]
     Active Substance: ACETAMINOPHEN\HYDROCODONE BITARTRATE
     Dosage: 10 MG-325 MG 1 TAB, PRN, EVERY 6 HOURS
     Route: 048
  10. PLAQUENIL SULFATE [Concomitant]
     Active Substance: HYDROXYCHLOROQUINE SULFATE
     Dosage: 400 MG, QD
     Route: 048
  11. PREDNISONE. [Concomitant]
     Active Substance: PREDNISONE
     Dosage: 5 MG, QD
     Route: 048
  12. CELEBREX [Concomitant]
     Active Substance: CELECOXIB
     Dosage: 200 MG, QD
     Route: 048
  13. DICLOFENAC [Concomitant]
     Active Substance: DICLOFENAC
     Dosage: 1 % GEL APPLY 3/4 TO I INCH TO RT GREAT TOE UP TO 4 TIMES A DAY, PRN
     Route: 061
  14. GLUCOSAMINE [Concomitant]
     Active Substance: GLUCOSAMINE
     Dosage: UNK UNK, QD

REACTIONS (25)
  - Dyspnoea [Unknown]
  - Deafness [Unknown]
  - Weight fluctuation [Unknown]
  - Feeling abnormal [Unknown]
  - Psychomotor hyperactivity [Unknown]
  - Alopecia [Unknown]
  - Energy increased [Recovered/Resolved]
  - Sinus disorder [Unknown]
  - Pain in extremity [Unknown]
  - Joint swelling [Unknown]
  - Depression [Unknown]
  - Temperature intolerance [Unknown]
  - Arthralgia [Unknown]
  - Tinnitus [Unknown]
  - Tooth disorder [Recovered/Resolved]
  - Dry eye [Unknown]
  - Joint warmth [Unknown]
  - Anxiety [Unknown]
  - Muscular weakness [Unknown]
  - Fatigue [Unknown]
  - Dry mouth [Unknown]
  - Abdominal discomfort [Unknown]
  - Neck pain [Unknown]
  - Pain [Unknown]
  - Sleep disorder [Unknown]

NARRATIVE: CASE EVENT DATE: 2015
